FAERS Safety Report 8483600 (Version 9)
Quarter: 2013Q2

REPORT INFORMATION
  Report Type: Report from Study
  Country: CZ (occurrence: CZ)
  Receive Date: 20120329
  Receipt Date: 20130627
  Transmission Date: 20140414
  Serious: Yes (Other)
  Sender: FDA-Public Use
  Company Number: CZ-ABBOTT-12P-217-0916432-00

PATIENT
  Age: 51 Year
  Sex: Female
  Weight: 73 kg

DRUGS (11)
  1. HUMIRA [Suspect]
     Indication: SPONDYLITIS
     Route: 058
     Dates: start: 20100906
  2. HUMIRA [Suspect]
     Route: 058
     Dates: end: 20120305
  3. SULFASALAZIN EN [Concomitant]
     Indication: SPONDYLITIS
     Dates: start: 20100603
  4. SULFASALAZIN EN [Concomitant]
     Dates: start: 20080422, end: 20100602
  5. PROFENID [Concomitant]
     Indication: SPONDYLITIS
     Dates: start: 201001, end: 201005
  6. PROFENID [Concomitant]
     Dates: start: 201006
  7. TRALGIT [Concomitant]
     Indication: SPONDYLITIS
     Dates: start: 200912
  8. REMOOD [Concomitant]
     Indication: DEPRESSION
     Dates: start: 2009
  9. VOLTAREN EMULGEL [Concomitant]
     Indication: SPONDYLITIS
     Dates: start: 201001
  10. BETALOC [Concomitant]
     Indication: HYPERTENSION
     Dates: start: 2009
  11. HELICID [Concomitant]
     Indication: DYSPEPSIA
     Dates: start: 200611

REACTIONS (1)
  - Benign ovarian tumour [Recovered/Resolved]
